FAERS Safety Report 11417457 (Version 1)
Quarter: 2015Q3

REPORT INFORMATION
  Report Type: Spontaneous
  Country: US (occurrence: US)
  Receive Date: 20150825
  Receipt Date: 20150825
  Transmission Date: 20151125
  Serious: No
  Sender: FDA-Public Use
  Company Number: US-TEVA-588649USA

PATIENT
  Sex: Male

DRUGS (1)
  1. AZILECT [Suspect]
     Active Substance: RASAGILINE MESYLATE
     Indication: PARKINSON^S DISEASE
     Dates: start: 20150630

REACTIONS (6)
  - Dizziness [Unknown]
  - Dry mouth [Unknown]
  - Drug ineffective [Unknown]
  - Malaise [Unknown]
  - Slow speech [Unknown]
  - Pain [Unknown]

NARRATIVE: CASE EVENT DATE: 201507
